FAERS Safety Report 16713860 (Version 2)
Quarter: 2019Q3

REPORT INFORMATION
  Report Type: Spontaneous
  Country: US (occurrence: US)
  Receive Date: 20190819
  Receipt Date: 20190819
  Transmission Date: 20191004
  Serious: Yes (Hospitalization)
  Sender: FDA-Public Use
  Company Number: US-CELGENEUS-USA-20190703350

PATIENT
  Age: 86 Year
  Sex: Female

DRUGS (9)
  1. DONEPEZIL. [Concomitant]
     Active Substance: DONEPEZIL
     Indication: MAJOR DEPRESSION
     Dosage: 10 MILLIGRAM
     Route: 065
  2. LEVOTHYROXINE. [Concomitant]
     Active Substance: LEVOTHYROXINE
     Indication: THYROID DISORDER
     Dosage: 25 MICROGRAM
     Route: 065
  3. LOVASTATIN. [Concomitant]
     Active Substance: LOVASTATIN
     Indication: HYPERLIPIDAEMIA
     Dosage: 40 MILLIGRAM
     Route: 065
  4. REVLIMID [Suspect]
     Active Substance: LENALIDOMIDE
     Indication: PLASMA CELL MYELOMA
     Dosage: 15 MILLIGRAM
     Route: 048
     Dates: start: 201804
  5. TRAZODONE [Concomitant]
     Active Substance: TRAZODONE HYDROCHLORIDE
     Indication: MAJOR DEPRESSION
     Dosage: 50 MILLIGRAM
     Route: 065
  6. MIRTAZAPINE. [Concomitant]
     Active Substance: MIRTAZAPINE
     Indication: MAJOR DEPRESSION
     Dosage: 30 MILLIGRAM
     Route: 065
  7. REVLIMID [Suspect]
     Active Substance: LENALIDOMIDE
     Dosage: 10 MILLIGRAM
     Route: 048
     Dates: start: 201902, end: 20190705
  8. SERTRALINE [Concomitant]
     Active Substance: SERTRALINE HYDROCHLORIDE
     Indication: MAJOR DEPRESSION
     Dosage: 200 MILLIGRAM
     Route: 065
  9. ACYCLOVIR. [Concomitant]
     Active Substance: ACYCLOVIR
     Indication: PROPHYLAXIS
     Dosage: 800 MILLIGRAM
     Route: 065

REACTIONS (3)
  - Dementia [Unknown]
  - Acute kidney injury [Recovered/Resolved]
  - Pancytopenia [Recovering/Resolving]

NARRATIVE: CASE EVENT DATE: 20190705
